APPROVED DRUG PRODUCT: NORVIR
Active Ingredient: RITONAVIR
Strength: 100MG
Dosage Form/Route: TABLET;ORAL
Application: N022417 | Product #001 | TE Code: AB
Applicant: ABBVIE INC
Approved: Feb 10, 2010 | RLD: Yes | RS: No | Type: RX